FAERS Safety Report 15665746 (Version 4)
Quarter: 2018Q4

REPORT INFORMATION
  Report Type: Spontaneous
  Country: FR (occurrence: FR)
  Receive Date: 20181128
  Receipt Date: 20181203
  Transmission Date: 20190205
  Serious: Yes (Hospitalization)
  Sender: FDA-Public Use
  Company Number: PHHY2018FR166791

PATIENT
  Age: 17 Year
  Sex: Male

DRUGS (11)
  1. SERESTA [Suspect]
     Active Substance: OXAZEPAM
     Indication: SUICIDE ATTEMPT
     Dosage: 310 MG, UNK  (TOTAL)
     Route: 048
     Dates: start: 20180701, end: 20180701
  2. TRIMEBUTINE [Suspect]
     Active Substance: TRIMEBUTINE
     Indication: SUICIDE ATTEMPT
     Dosage: 14000 MG, UNK (TOTAL)
     Route: 048
     Dates: start: 20180701, end: 20180701
  3. PARACETAMOL [Suspect]
     Active Substance: ACETAMINOPHEN
     Indication: SUICIDE ATTEMPT
     Dosage: 79 G, UNK  (TOTAL)
     Route: 048
     Dates: start: 20180701, end: 20180701
  4. AZITHROMYCIN ANHYDROUS. [Suspect]
     Active Substance: AZITHROMYCIN ANHYDROUS
     Indication: SUICIDE ATTEMPT
     Dosage: 1500 MG, UNK (TOTAL)
     Route: 048
     Dates: start: 20180701, end: 20180701
  5. ESCITALOPRAM [Suspect]
     Active Substance: ESCITALOPRAM OXALATE
     Indication: SUICIDE ATTEMPT
     Dosage: 140 MG, UNK (ONE DAY)
     Route: 048
     Dates: start: 20180701, end: 20180701
  6. CEFPODOXIME [Suspect]
     Active Substance: CEFPODOXIME
     Indication: SUICIDE ATTEMPT
     Dosage: 2000 MG, UNK (TOTAL)
     Route: 048
     Dates: start: 20180701, end: 20180701
  7. PREDNISOLON [Suspect]
     Active Substance: PREDNISOLONE
     Indication: SUICIDE ATTEMPT
     Dosage: 200 MG, UNK (TOTAL)
     Route: 048
     Dates: start: 20180701, end: 20180701
  8. HEPATOUM [Suspect]
     Active Substance: DIETARY SUPPLEMENT\HERBALS
     Indication: SUICIDE ATTEMPT
     Dosage: UNK
     Route: 048
  9. AUGMENTIN [Suspect]
     Active Substance: AMOXICILLIN\CLAVULANATE POTASSIUM
     Indication: SUICIDE ATTEMPT
     Dosage: 6 G, UNK (ONE DAY)
     Route: 048
     Dates: start: 20180701, end: 20180701
  10. ARESTAL [Suspect]
     Active Substance: LOPERAMIDE OXIDE
     Indication: SUICIDE ATTEMPT
     Dosage: 30 MG, UNK  (TOTAL)
     Route: 048
     Dates: start: 20180701, end: 20180701
  11. INORIAL [Suspect]
     Active Substance: BILASTINE
     Indication: SUICIDE ATTEMPT
     Dosage: 120 MG, UNK  (TOTAL)
     Route: 048
     Dates: start: 20180701, end: 20180701

REACTIONS (7)
  - Malaise [Recovered/Resolved]
  - Vomiting [Recovered/Resolved]
  - Toxicity to various agents [Recovered/Resolved]
  - Intentional overdose [Unknown]
  - Mydriasis [Recovered/Resolved]
  - Somnolence [Recovered/Resolved]
  - Product use issue [Unknown]

NARRATIVE: CASE EVENT DATE: 20180701
